FAERS Safety Report 23173706 (Version 1)
Quarter: 2023Q4

REPORT INFORMATION
  Report Type: Spontaneous
  Country: US (occurrence: US)
  Receive Date: 20231111
  Receipt Date: 20231111
  Transmission Date: 20240110
  Serious: No
  Sender: FDA-Public Use
  Company Number: US-009507513-2311USA002977

PATIENT
  Age: 43 Year
  Sex: Female

DRUGS (5)
  1. KEYTRUDA [Suspect]
     Active Substance: PEMBROLIZUMAB
     Indication: Adrenocortical carcinoma
  2. ETOPOSIDE [Concomitant]
     Active Substance: ETOPOSIDE
     Indication: Adrenocortical carcinoma
  3. DOXORUBICIN [Concomitant]
     Active Substance: DOXORUBICIN
     Indication: Adrenocortical carcinoma
  4. CISPLATIN [Concomitant]
     Active Substance: CISPLATIN
     Indication: Adrenocortical carcinoma
  5. MITOTANE [Concomitant]
     Active Substance: MITOTANE
     Indication: Adrenocortical carcinoma

REACTIONS (1)
  - Off label use [Unknown]
